FAERS Safety Report 8107806-6 (Version None)
Quarter: 2012Q1

REPORT INFORMATION
  Report Type: 
  Country: None (occurrence: None)
  Receive Date: 20120202
  Receipt Date: 20120124
  Transmission Date: 20120608
  Serious: Yes (Hospitalization)
  Sender: FDA-Public Use
  Company Number: US-ROCHE-1035831

PATIENT
  Sex: Female

DRUGS (2)
  1. PEGINTERFERON ALFA-2A [Suspect]
     Indication: HEPATITIS C
     Dates: start: 20111201
  2. COPEGUS [Suspect]
     Indication: HEPATITIS C
     Dates: start: 20111201

REACTIONS (2)
  - DYSPNOEA [None]
  - DYSPHAGIA [None]
